FAERS Safety Report 7137763 (Version 5)
Quarter: 2015Q1

REPORT INFORMATION
  Report Type: Spontaneous
  Country: US (occurrence: US)
  Receive Date: 20091002
  Receipt Date: 20150227
  Transmission Date: 20150721
  Serious: Yes (Other)
  Sender: FDA-Public Use
  Company Number: US-ASTRAZENECA-2009UW05963

PATIENT
  Age: 61 Year
  Sex: Female
  Weight: 88.5 kg

DRUGS (19)
  1. METOPROLOL [Concomitant]
     Active Substance: METOPROLOL
  2. CITRACAL [Concomitant]
     Active Substance: CALCIUM CITRATE
  3. METOPROLOL TARTRATE. [Concomitant]
     Active Substance: METOPROLOL TARTRATE
     Indication: CARDIAC DISORDER
     Route: 048
     Dates: start: 201207
  4. ARIMIDEX [Suspect]
     Active Substance: ANASTROZOLE
     Indication: BREAST CANCER
     Route: 048
     Dates: start: 20090220
  5. ASPIRIN. [Concomitant]
     Active Substance: ASPIRIN
     Indication: CARDIAC DISORDER
     Route: 048
     Dates: start: 201207
  6. ZOCOR [Concomitant]
     Active Substance: SIMVASTATIN
  7. CALCIUM [Concomitant]
     Active Substance: CALCIUM
     Indication: PROPHYLAXIS
     Route: 048
  8. SIMVASTATIN. [Concomitant]
     Active Substance: SIMVASTATIN
     Indication: BLOOD CHOLESTEROL ABNORMAL
     Route: 048
     Dates: start: 201207
  9. CENTRUM SILVER MULTI VITAMIN [Concomitant]
  10. POTASSIUM [Concomitant]
     Active Substance: POTASSIUM
  11. MVI [Concomitant]
     Active Substance: VITAMINS
     Indication: PROPHYLAXIS
     Dosage: TIWK
     Route: 048
  12. BETA BLOCKERS [Concomitant]
  13. ARIMIDEX [Suspect]
     Active Substance: ANASTROZOLE
     Indication: BREAST CANCER
     Dosage: 1 MG, TAKING AT 2 PM EVERY DAY
     Route: 048
  14. ARIMIDEX [Suspect]
     Active Substance: ANASTROZOLE
     Indication: BREAST CANCER
     Dosage: AT 8 PM
     Route: 048
  15. OMEPRAZOLE. [Suspect]
     Active Substance: OMEPRAZOLE
     Indication: GASTROOESOPHAGEAL REFLUX DISEASE
     Route: 048
     Dates: start: 201312
  16. STATIN [Concomitant]
     Active Substance: UNSPECIFIED INGREDIENT
  17. OMEPRAZOLE. [Suspect]
     Active Substance: OMEPRAZOLE
     Indication: GASTROOESOPHAGEAL REFLUX DISEASE
     Route: 048
     Dates: start: 2012
  18. SUCRALFATE. [Concomitant]
     Active Substance: SUCRALFATE
     Dosage: FOUR TIMES A DAY ON AN EMPTY STOMACH
  19. VITAMIN D [Concomitant]
     Active Substance: CHOLECALCIFEROL
     Indication: PROPHYLAXIS
     Route: 048

REACTIONS (23)
  - Atrioventricular block second degree [Unknown]
  - Heart rate decreased [Unknown]
  - Urine output decreased [Unknown]
  - Osteopenia [Recovering/Resolving]
  - Red blood cell count decreased [Unknown]
  - Peripheral swelling [Recovered/Resolved]
  - Coronary artery occlusion [Unknown]
  - Dyspnoea [Unknown]
  - Abnormal weight gain [Unknown]
  - Heart rate increased [Recovered/Resolved]
  - Hot flush [Recovered/Resolved with Sequelae]
  - Pulmonary oedema [Recovered/Resolved]
  - Chills [Recovered/Resolved with Sequelae]
  - Constipation [Unknown]
  - Renal cyst [Unknown]
  - Alopecia [Unknown]
  - Cardiomegaly [Unknown]
  - Left atrial dilatation [Unknown]
  - Erosive oesophagitis [Unknown]
  - Fatigue [Recovered/Resolved with Sequelae]
  - Blood cholesterol increased [Unknown]
  - Heart valve incompetence [Unknown]
  - Insomnia [Recovered/Resolved]

NARRATIVE: CASE EVENT DATE: 2009
